FAERS Safety Report 8053484-4 (Version None)
Quarter: 2012Q1

REPORT INFORMATION
  Report Type: 
  Country: None (occurrence: None)
  Receive Date: 20120118
  Receipt Date: 20120113
  Transmission Date: 20120608
  Serious: Yes (Death)
  Sender: FDA-Public Use
  Company Number: US-PFIZER INC-2012010957

PATIENT
  Sex: Male
  Weight: 140.59 kg

DRUGS (4)
  1. VIAGRA [Suspect]
     Dosage: UNK
     Route: 048
  2. VIAGRA [Suspect]
     Indication: SEXUALLY ACTIVE
     Dosage: 50 MG, AS NEEDED
     Route: 048
     Dates: start: 20000101
  3. ASPIRIN [Concomitant]
     Dosage: UNK
  4. CELEBREX [Concomitant]
     Indication: ARTHRALGIA
     Dosage: UNK

REACTIONS (1)
  - CARDIAC FAILURE CONGESTIVE [None]
